FAERS Safety Report 11274958 (Version 3)
Quarter: 2015Q3

REPORT INFORMATION
  Report Type: Spontaneous
  Country: CA (occurrence: CA)
  Receive Date: 20150716
  Receipt Date: 20150901
  Transmission Date: 20151125
  Serious: Yes (Other)
  Sender: FDA-Public Use
  Company Number: CA-PFIZER INC-2015232627

PATIENT
  Age: 82 Year
  Sex: Female

DRUGS (1)
  1. XELJANZ [Suspect]
     Active Substance: TOFACITINIB CITRATE
     Indication: RHEUMATOID ARTHRITIS
     Dosage: 5 MG, 2X/DAY
     Route: 048
     Dates: start: 20150526, end: 20150707

REACTIONS (2)
  - Malaise [Not Recovered/Not Resolved]
  - Lower respiratory tract infection [Unknown]

NARRATIVE: CASE EVENT DATE: 2015
